FAERS Safety Report 6211432-3 (Version None)
Quarter: 2009Q2

REPORT INFORMATION
  Report Type: 
  Country: None (occurrence: None)
  Receive Date: 20090602
  Receipt Date: 20090525
  Transmission Date: 20091009
  Serious: Yes (Death, Hospitalization)
  Sender: FDA-Public Use
  Company Number: SE-ELI_LILLY_AND_COMPANY-SE200905005787

PATIENT
  Age: 71 Year
  Sex: Male

DRUGS (1)
  1. GEMZAR [Suspect]
     Indication: BLADDER CANCER
     Dosage: TOTAL DOSE: 1-2000 MG
     Route: 042
     Dates: start: 19980427, end: 19981019

REACTIONS (4)
  - FATIGUE [None]
  - GENERAL PHYSICAL HEALTH DETERIORATION [None]
  - OEDEMA PERIPHERAL [None]
  - RENAL FAILURE [None]
